FAERS Safety Report 4939560-0 (Version None)
Quarter: 2006Q1

REPORT INFORMATION
  Report Type: 
  Country: None (occurrence: None)
  Receive Date: 20060306
  Receipt Date: 20060220
  Transmission Date: 20060701
  Serious: Yes (Hospitalization)
  Sender: FDA-Public Use
  Company Number: S06-ESP-00827-01

PATIENT
  Age: 88 Year
  Sex: Female

DRUGS (6)
  1. CITALOPRAM HYDROBROMIDE [Suspect]
     Indication: DEPRESSION
     Dosage: 20 MG QD PO
     Route: 048
     Dates: end: 20060103
  2. DABONAL PLUS [Suspect]
     Indication: HYPERTENSION
     Dosage: 12.5 MG QD PO
     Route: 048
     Dates: end: 20060103
  3. DABONAL PLUS [Suspect]
     Indication: HYPERTENSION
     Dosage: 20 MG QD PO
     Route: 048
     Dates: end: 20060103
  4. ATACAND [Concomitant]
  5. DEXNON (LEVOTHYROXINE SODIUM) [Concomitant]
  6. ZOCOR [Concomitant]

REACTIONS (1)
  - HYPONATRAEMIA [None]
